FAERS Safety Report 9263476 (Version 1)
Quarter: 2013Q2

REPORT INFORMATION
  Report Type: Spontaneous
  Country: US (occurrence: US)
  Receive Date: 20130430
  Receipt Date: 20130430
  Transmission Date: 20140414
  Serious: No
  Sender: FDA-Public Use
  Company Number: US-ABBOTT-13P-163-1061888-00

PATIENT
  Sex: Female
  Weight: 54.03 kg

DRUGS (2)
  1. CREON [Suspect]
     Indication: PANCREATIC DISORDER
     Dosage: 2 WITH MEALS ONE WITH SNACK
     Dates: start: 2010
  2. CREON [Suspect]
     Dosage: 3 WITH MEALS 2 WITH SNACK

REACTIONS (5)
  - Weight decreased [Not Recovered/Not Resolved]
  - Blood uric acid increased [Not Recovered/Not Resolved]
  - Hyperglycaemia [Not Recovered/Not Resolved]
  - Asthenia [Not Recovered/Not Resolved]
  - Medication error [Not Recovered/Not Resolved]
